FAERS Safety Report 22341425 (Version 1)
Quarter: 2023Q2

REPORT INFORMATION
  Report Type: Spontaneous
  Country: US (occurrence: US)
  Receive Date: 20230518
  Receipt Date: 20230518
  Transmission Date: 20230722
  Serious: Yes (Death, Other)
  Sender: FDA-Public Use
  Company Number: US-GILEAD-2023-0628924

PATIENT
  Age: 76 Year
  Sex: Male

DRUGS (29)
  1. TECARTUS [Suspect]
     Active Substance: BREXUCABTAGENE AUTOLEUCEL
     Indication: Mantle cell lymphoma
     Dosage: 68 ML
     Route: 042
     Dates: start: 20230315, end: 20230315
  2. ACYCLOVIR [Concomitant]
     Active Substance: ACYCLOVIR
  3. ALLOPURINOL [Concomitant]
     Active Substance: ALLOPURINOL
  4. AMLODIPINE [Concomitant]
     Active Substance: AMLODIPINE BESYLATE
  5. ANAKINRA [Concomitant]
     Active Substance: ANAKINRA
  6. ATOVAQUONE [Concomitant]
     Active Substance: ATOVAQUONE
  7. AZITHROMYCIN [Concomitant]
     Active Substance: AZITHROMYCIN
  8. CEFEPIME [Concomitant]
     Active Substance: CEFEPIME HYDROCHLORIDE
  9. CISATRACURIUM [Concomitant]
     Active Substance: CISATRACURIUM
  10. DEXAMETHASONE [Concomitant]
     Active Substance: DEXAMETHASONE
  11. DEXMEDETOMIDINE [Concomitant]
     Active Substance: DEXMEDETOMIDINE
  12. DOXAZOSIN [Concomitant]
     Active Substance: DOXAZOSIN MESYLATE
  13. ENOXAPARIN [Concomitant]
     Active Substance: ENOXAPARIN
  14. FELODIPINE [Concomitant]
     Active Substance: FELODIPINE
  15. FENTANYL [Concomitant]
     Active Substance: FENTANYL
  16. FUROSEMIDE [Concomitant]
     Active Substance: FUROSEMIDE
  17. HEPARIN [Concomitant]
     Active Substance: HEPARIN SODIUM
  18. HYDRALAZINE [Concomitant]
     Active Substance: HYDRALAZINE HYDROCHLORIDE
  19. KETAMINE [Concomitant]
     Active Substance: KETAMINE
  20. LABETALOL [Concomitant]
     Active Substance: LABETALOL\LABETALOL HYDROCHLORIDE
  21. LEVETIRACETAM [Concomitant]
     Active Substance: LEVETIRACETAM
  22. METOPROLOL [Concomitant]
     Active Substance: METOPROLOL
  23. METRONIDAZOLE [Concomitant]
     Active Substance: METRONIDAZOLE
  24. MIDAZOLAM [Concomitant]
     Active Substance: MIDAZOLAM
  25. NOREPINEPHRINE [Concomitant]
     Active Substance: NOREPINEPHRINE
  26. PANTOPRAZOLE [Concomitant]
     Active Substance: PANTOPRAZOLE
  27. PHENOBARBITAL [Concomitant]
     Active Substance: PHENOBARBITAL
  28. ROCURONIUM [Concomitant]
     Active Substance: ROCURONIUM BROMIDE
  29. TOCILIZUMAB [Concomitant]
     Active Substance: TOCILIZUMAB

REACTIONS (5)
  - Death [Fatal]
  - Immune effector cell-associated neurotoxicity syndrome [Fatal]
  - Cardiac arrest [Unknown]
  - Unresponsive to stimuli [Unknown]
  - Cytokine release syndrome [Unknown]

NARRATIVE: CASE EVENT DATE: 20230320
